FAERS Safety Report 5530005-9 (Version None)
Quarter: 2007Q4

REPORT INFORMATION
  Report Type: 
  Country: None (occurrence: None)
  Receive Date: 20071127
  Receipt Date: 20071115
  Transmission Date: 20080405
  Serious: Yes (Death, Hospitalization)
  Sender: FDA-Public Use
  Company Number: 163-C5013-07110144

PATIENT
  Age: 82 Year
  Sex: Female
  Weight: 59.8748 kg

DRUGS (14)
  1. CC-5013 (LENALIDOMIDE) (25 MILLIGRAM, CAPSULES) [Suspect]
     Indication: NON-HODGKIN'S LYMPHOMA
     Dosage: 25  MG, QD X21 DAYS, ORAL
     Route: 048
     Dates: start: 20071016, end: 20071029
  2. METFORMIN HCL [Concomitant]
  3. GLIPIZIDE [Concomitant]
  4. MULTIVITAMIN [Concomitant]
  5. RANITIDINE HCL (RANITIDINE HYDROCHLORIDE) [Concomitant]
  6. CITRACAL (CALCIUM CITRATE) [Concomitant]
  7. LOVASTATIN [Concomitant]
  8. VICODIN [Concomitant]
  9. IMODIUM [Concomitant]
  10. FLUOCINONIDE [Concomitant]
  11. FENTANYL [Concomitant]
  12. ALLOPURINOL [Concomitant]
  13. ASPIRIN [Concomitant]
  14. ADRIAMYCIN PFS [Concomitant]

REACTIONS (15)
  - B-CELL LYMPHOMA [None]
  - BLOOD UREA INCREASED [None]
  - DEHYDRATION [None]
  - DISEASE PROGRESSION [None]
  - HAEMOGLOBIN DECREASED [None]
  - HYPOGLYCAEMIA [None]
  - HYPOTENSION [None]
  - INFLAMMATION [None]
  - LYMPHOMA [None]
  - NEOPLASM PROGRESSION [None]
  - PULMONARY CALCIFICATION [None]
  - SCAN ABDOMEN ABNORMAL [None]
  - SEPSIS [None]
  - TUMOUR NECROSIS [None]
  - URINE KETONE BODY PRESENT [None]
